FAERS Safety Report 4807082-3 (Version None)
Quarter: 2005Q4

REPORT INFORMATION
  Report Type: 
  Country: None (occurrence: None)
  Receive Date: 20051020
  Receipt Date: 20051020
  Transmission Date: 20060501
  Serious: Yes (Hospitalization)
  Sender: FDA-Public Use
  Company Number: None

PATIENT
  Age: 60 Year
  Sex: Male
  Weight: 75.8 kg

DRUGS (12)
  1. LEVAQUIN IN DEXTROSE 5% [Suspect]
  2. GLYBURIDE [Concomitant]
  3. DIPHENHYDRAMINE HCL [Concomitant]
  4. FAMCICLOVIR [Concomitant]
  5. NIACIN (NIASPAN) [Concomitant]
  6. IPRATROPIUM BROMIDE [Concomitant]
  7. ALBUTEROL [Concomitant]
  8. INSULIN REG HUMAN 100 U/ML INJ NOVOLIN R [Concomitant]
  9. ACETAMINOPHEN (INPT-UD) [Concomitant]
  10. MAGNESIUM HYDROXIDE TAB [Concomitant]
  11. ALOH/MGOH/SIMTH XTRA STRENGTH [Concomitant]
  12. PIPERACILLIN/TAZOBACTAM [Concomitant]

REACTIONS (1)
  - RASH [None]
